FAERS Safety Report 12289250 (Version 1)
Quarter: 2016Q2

REPORT INFORMATION
  Report Type: Spontaneous
  Country: US (occurrence: US)
  Receive Date: 20160421
  Receipt Date: 20160421
  Transmission Date: 20160815
  Serious: No
  Sender: FDA-Public Use
  Company Number: US-ALVOGEN-2015-ALVOGEN-015687

PATIENT
  Sex: Female
  Weight: 78.93 kg

DRUGS (9)
  1. ATENOLOL. [Suspect]
     Active Substance: ATENOLOL
     Indication: CHEST PAIN
     Route: 048
  2. ATENOLOL. [Suspect]
     Active Substance: ATENOLOL
     Indication: HEART RATE INCREASED
     Route: 048
  3. ATENOLOL. [Suspect]
     Active Substance: ATENOLOL
     Indication: CHEST PAIN
     Route: 048
  4. DILTIAZEM HYDROCHLORIDE. [Suspect]
     Active Substance: DILTIAZEM HYDROCHLORIDE
     Indication: HEART RATE INCREASED
     Route: 048
     Dates: start: 201410
  5. DILTIAZEM HYDROCHLORIDE. [Suspect]
     Active Substance: DILTIAZEM HYDROCHLORIDE
     Indication: CHEST PAIN
     Route: 048
     Dates: start: 201410
  6. NEXIUM [Concomitant]
     Active Substance: ESOMEPRAZOLE MAGNESIUM
     Indication: GASTROOESOPHAGEAL REFLUX DISEASE
     Route: 048
     Dates: start: 2001
  7. DILTIAZEM HYDROCHLORIDE. [Suspect]
     Active Substance: DILTIAZEM HYDROCHLORIDE
     Indication: HEART RATE INCREASED
     Route: 048
     Dates: end: 201410
  8. ATENOLOL. [Suspect]
     Active Substance: ATENOLOL
     Indication: HEART RATE INCREASED
     Route: 048
  9. DILTIAZEM HYDROCHLORIDE. [Suspect]
     Active Substance: DILTIAZEM HYDROCHLORIDE
     Indication: CHEST PAIN
     Route: 048
     Dates: end: 201410

REACTIONS (1)
  - Palpitations [Recovered/Resolved]
